FAERS Safety Report 16768654 (Version 2)
Quarter: 2019Q3

REPORT INFORMATION
  Report Type: Spontaneous
  Country: US (occurrence: US)
  Receive Date: 20190903
  Receipt Date: 20190930
  Transmission Date: 20191005
  Serious: Yes (Hospitalization, Other)
  Sender: FDA-Public Use
  Company Number: US-GLAXOSMITHKLINE-US2019AMR159025

PATIENT
  Sex: Male

DRUGS (1)
  1. TRELEGY ELLIPTA [Suspect]
     Active Substance: FLUTICASONE FUROATE\UMECLIDINIUM BROMIDE\VILANTEROL TRIFENATATE
     Indication: PRODUCT USED FOR UNKNOWN INDICATION
     Dosage: UNK
     Route: 065

REACTIONS (6)
  - Prostate cancer [Unknown]
  - Leg amputation [Unknown]
  - Lung neoplasm malignant [Unknown]
  - Postoperative wound infection [Not Recovered/Not Resolved]
  - Post procedural complication [Unknown]
  - Gait inability [Unknown]

NARRATIVE: CASE EVENT DATE: 20181128
